FAERS Safety Report 8583874-2 (Version None)
Quarter: 2012Q3

REPORT INFORMATION
  Report Type: 
  Country: None (occurrence: None)
  Receive Date: 20120810
  Receipt Date: 20120731
  Transmission Date: 20120928
  Serious: Yes (Hospitalization, Disabling, Other)
  Sender: FDA-Public Use
  Company Number: US-009507513-1201USA02537

PATIENT

DRUGS (6)
  1. FOSAMAX [Suspect]
     Indication: OSTEOPENIA
     Dosage: 70 MG, QW
     Route: 048
     Dates: start: 20040305, end: 20080422
  2. FOSAMAX [Suspect]
     Indication: OSTEOPOROSIS
  3. FOSAMAX [Suspect]
     Dosage: UNK MG, UNK
     Route: 048
     Dates: start: 20080717, end: 20080917
  4. CALCIUM (UNSPECIFIED) [Concomitant]
     Dosage: 600 MG, UNK
  5. OMEGA-3-ACID ETHYL ESTERS [Concomitant]
     Dosage: 1000 MG, UNK
     Route: 048
  6. VITAMIN D [Concomitant]
     Dosage: 400 IU, UNK
     Route: 048

REACTIONS (34)
  - CATARACT [None]
  - HYPERTENSION [None]
  - CHEST PAIN [None]
  - APPENDICECTOMY [None]
  - ARTHROPATHY [None]
  - FEMUR FRACTURE [None]
  - LUNG DISORDER [None]
  - TOOTH DISORDER [None]
  - BRONCHITIS [None]
  - CARDIAC FAILURE CONGESTIVE [None]
  - COSTOCHONDRITIS [None]
  - PERICARDIAL EFFUSION [None]
  - MUSCULOSKELETAL CHEST PAIN [None]
  - DRUG INEFFECTIVE [None]
  - MYOCARDIAL INFARCTION [None]
  - EYE OPERATION [None]
  - URINARY TRACT INFECTION [None]
  - INTERSTITIAL LUNG DISEASE [None]
  - LABORATORY TEST ABNORMAL [None]
  - PAIN IN EXTREMITY [None]
  - FALL [None]
  - DEVICE FAILURE [None]
  - HYPOTHYROIDISM [None]
  - PERIODONTAL DISEASE [None]
  - MITRAL VALVE PROLAPSE [None]
  - NAUSEA [None]
  - VOMITING [None]
  - GASTROOESOPHAGEAL REFLUX DISEASE [None]
  - BONE DENSITY DECREASED [None]
  - PULMONARY EMBOLISM [None]
  - ACUTE MYOCARDIAL INFARCTION [None]
  - ANXIETY [None]
  - PNEUMONIA [None]
  - HYPERHIDROSIS [None]
